FAERS Safety Report 5709775-2 (Version None)
Quarter: 2008Q2

REPORT INFORMATION
  Report Type: 
  Country: None (occurrence: None)
  Receive Date: 20080418
  Receipt Date: 20080407
  Transmission Date: 20081010
  Serious: Yes (Death, Other)
  Sender: FDA-Public Use
  Company Number: JP-ROCHE-522800

PATIENT
  Sex: Female
  Weight: 38 kg

DRUGS (14)
  1. PEGASYS [Suspect]
     Route: 058
     Dates: start: 20070910, end: 20071023
  2. COPEGUS [Suspect]
     Dosage: DIVIDED INTO 2 DOSES.
     Route: 048
     Dates: start: 20070910, end: 20071008
  3. COPEGUS [Suspect]
     Route: 048
     Dates: start: 20071009, end: 20071030
  4. THYRADIN S [Concomitant]
     Route: 048
     Dates: start: 20071023
  5. THYRADIN S [Concomitant]
     Route: 048
  6. THYRADIN S [Concomitant]
     Route: 048
     Dates: start: 20040908
  7. SOLON [Concomitant]
     Route: 048
     Dates: start: 20071023
  8. LANSOPRAZOLE [Concomitant]
     Route: 048
     Dates: start: 20070529
  9. CETAPRIL [Concomitant]
     Route: 048
     Dates: start: 20070608
  10. ALLOPURINOL [Concomitant]
     Route: 048
     Dates: start: 20070713
  11. CELLCEPT [Concomitant]
     Route: 048
     Dates: start: 20040922
  12. URSO 250 [Concomitant]
     Route: 048
     Dates: start: 20050304
  13. DEPAS [Concomitant]
     Route: 048
     Dates: start: 20070518, end: 20071003
  14. NEORAL [Concomitant]
     Route: 048
     Dates: start: 20040908

REACTIONS (5)
  - ALANINE AMINOTRANSFERASE INCREASED [None]
  - ANAEMIA [None]
  - ASPARTATE AMINOTRANSFERASE INCREASED [None]
  - PULMONARY HYPERTENSION [None]
  - RIGHT VENTRICULAR FAILURE [None]
